FAERS Safety Report 23369883 (Version 1)
Quarter: 2024Q1

REPORT INFORMATION
  Report Type: Spontaneous
  Country: US (occurrence: US)
  Receive Date: 20240105
  Receipt Date: 20240105
  Transmission Date: 20240410
  Serious: No
  Sender: FDA-Public Use
  Company Number: US-TAKEDA-2024TUS001246

PATIENT
  Age: 68 Year
  Sex: Female

DRUGS (1)
  1. ENTYVIO [Suspect]
     Active Substance: VEDOLIZUMAB
     Indication: Product used for unknown indication
     Dosage: UNK UNK, Q4WEEKS
     Route: 042
     Dates: start: 20231018

REACTIONS (2)
  - Myalgia [Unknown]
  - Off label use [Unknown]

NARRATIVE: CASE EVENT DATE: 20231018
